FAERS Safety Report 5832758-9 (Version None)
Quarter: 2008Q3

REPORT INFORMATION
  Report Type: 
  Country: None (occurrence: None)
  Receive Date: 20080731
  Receipt Date: 20080715
  Transmission Date: 20090109
  Serious: Yes (Death)
  Sender: FDA-Public Use
  Company Number: 8035080

PATIENT
  Sex: Male
  Weight: 124 kg

DRUGS (8)
  1. KEPPRA [Suspect]
     Dosage: 1000 MG /D
     Dates: start: 20070529
  2. KEPPRA [Suspect]
     Dosage: 1500 MG /D
     Dates: start: 20070602
  3. KEPPRA [Suspect]
     Dosage: 2000 MG /D
     Dates: start: 20070606
  4. KEPPRA [Suspect]
     Dosage: 3000 MG /D
     Dates: start: 20070701
  5. COTRIM [Concomitant]
  6. PANTOZOL [Concomitant]
  7. FORTECORTIN [Concomitant]
  8. ERGENYL CHRONO [Concomitant]

REACTIONS (1)
  - GLIOBLASTOMA [None]
